FAERS Safety Report 14847040 (Version 1)
Quarter: 2018Q2

REPORT INFORMATION
  Report Type: Report from Study
  Country: US (occurrence: US)
  Receive Date: 20180504
  Receipt Date: 20180504
  Transmission Date: 20180711
  Serious: Yes (Other)
  Sender: FDA-Public Use
  Company Number: US-PFIZER INC-2018180284

PATIENT
  Age: 36 Year
  Sex: Female
  Weight: 60.77 kg

DRUGS (12)
  1. AMITIZA [Concomitant]
     Active Substance: LUBIPROSTONE
     Indication: DRUG USE DISORDER
     Dosage: UNK
  2. LAMICTAL [Concomitant]
     Active Substance: LAMOTRIGINE
     Indication: DEPRESSION
     Dosage: UNK
  3. DEPO-PROVERA [Suspect]
     Active Substance: MEDROXYPROGESTERONE ACETATE
     Dosage: UNK
     Dates: start: 201611
  4. HUMIRA [Suspect]
     Active Substance: ADALIMUMAB
     Indication: ANKYLOSING SPONDYLITIS
     Dosage: 40 MG, UNK (1 IN 2 WK)
     Route: 058
     Dates: start: 201612, end: 201711
  5. METFORMIN [Concomitant]
     Active Substance: METFORMIN HYDROCHLORIDE
     Indication: OVARIAN CANCER
     Dosage: UNK
  6. VOLTAREN [Concomitant]
     Active Substance: DICLOFENAC SODIUM
     Indication: SPINAL DISORDER
     Dosage: UNK
  7. HUMIRA [Suspect]
     Active Substance: ADALIMUMAB
     Dosage: 40 MG, UNK (1 IN 2 WK)
     Route: 058
     Dates: start: 201712
  8. ZIPSOR [Concomitant]
     Active Substance: DICLOFENAC POTASSIUM
     Indication: ANKYLOSING SPONDYLITIS
     Dosage: UNK
  9. DEXTROAMPHETAMINE. [Concomitant]
     Active Substance: DEXTROAMPHETAMINE
     Indication: PSYCHOMOTOR HYPERACTIVITY
     Dosage: UNK
  10. EXALGO [Concomitant]
     Active Substance: HYDROMORPHONE HYDROCHLORIDE
     Indication: SPINAL DISORDER
     Dosage: UNK
  11. SUMATRIPTAN. [Concomitant]
     Active Substance: SUMATRIPTAN
     Indication: MIGRAINE
     Dosage: UNK
  12. DEPO-MEDROL [Concomitant]
     Active Substance: METHYLPREDNISOLONE ACETATE
     Indication: ANKYLOSING SPONDYLITIS
     Dosage: UNK

REACTIONS (15)
  - Respiratory tract congestion [Unknown]
  - Procedural pain [Recovered/Resolved]
  - Carpal tunnel syndrome [Recovering/Resolving]
  - Cystitis noninfective [Recovered/Resolved]
  - Ovarian cyst [Recovered/Resolved]
  - Pharyngeal oedema [Recovered/Resolved]
  - Drug ineffective [Not Recovered/Not Resolved]
  - Oesophageal food impaction [Recovered/Resolved]
  - Muscle spasms [Unknown]
  - Menopause [Recovered/Resolved]
  - Abdominal pain [Recovered/Resolved]
  - Hepatic function abnormal [Not Recovered/Not Resolved]
  - Vaginal haemorrhage [Recovered/Resolved]
  - Nephrolithiasis [Recovering/Resolving]
  - Cervix inflammation [Recovered/Resolved]

NARRATIVE: CASE EVENT DATE: 201612
